FAERS Safety Report 6760445-1 (Version None)
Quarter: 2010Q2

REPORT INFORMATION
  Report Type: 
  Country: None (occurrence: None)
  Receive Date: 20100608
  Receipt Date: 20100527
  Transmission Date: 20101027
  Serious: Yes (Other)
  Sender: FDA-Public Use
  Company Number: PHHY2010FR34825

PATIENT
  Age: 66 Year
  Sex: Female

DRUGS (2)
  1. AFINITOR [Suspect]
     Indication: RENAL CANCER METASTATIC
     Dosage: 10 MG DAILY
     Dates: start: 20091101, end: 20091201
  2. AFINITOR [Suspect]
     Dosage: 5 MG DAILY
     Dates: start: 20091201

REACTIONS (1)
  - LUNG DISORDER [None]
